FAERS Safety Report 6833893-9 (Version None)
Quarter: 2010Q3

REPORT INFORMATION
  Report Type: 
  Country: None (occurrence: None)
  Receive Date: 20100712
  Receipt Date: 20070404
  Transmission Date: 20110219
  Serious: Yes (Other)
  Sender: FDA-Public Use
  Company Number: US-PFIZER INC-2007027900

PATIENT
  Sex: Male

DRUGS (2)
  1. VARENICLINE [Suspect]
     Indication: PRODUCT USED FOR UNKNOWN INDICATION
  2. NARDIL [Suspect]
     Indication: PRODUCT USED FOR UNKNOWN INDICATION

REACTIONS (2)
  - SUICIDAL IDEATION [None]
  - TOBACCO USER [None]
